FAERS Safety Report 7937753-1 (Version None)
Quarter: 2011Q4

REPORT INFORMATION
  Report Type: 
  Country: None (occurrence: None)
  Receive Date: 20111123
  Receipt Date: 20111121
  Transmission Date: 20120403
  Serious: Yes (Death, Hospitalization)
  Sender: FDA-Public Use
  Company Number: PHFR2010GB05696

PATIENT
  Sex: Male

DRUGS (3)
  1. CITALOPRAM HYDROBROMIDE [Concomitant]
     Dosage: 30 MG, UNK
     Route: 048
  2. OMEPRAZOLE [Concomitant]
     Dosage: 20 MG, UNK
  3. CLOZARIL [Suspect]
     Indication: SCHIZOPHRENIA
     Dosage: 300 MG, UNK
     Route: 048
     Dates: start: 20080123

REACTIONS (2)
  - MEDIASTINITIS [None]
  - OESOPHAGEAL ULCER PERFORATION [None]
